FAERS Safety Report 5644630-8 (Version None)
Quarter: 2008Q1

REPORT INFORMATION
  Report Type: 
  Country: None (occurrence: None)
  Receive Date: 20080229
  Receipt Date: 20070419
  Transmission Date: 20080703
  Serious: No
  Sender: FDA-Public Use
  Company Number: A0648024A

PATIENT
  Age: 50 Year
  Sex: Male

DRUGS (2)
  1. VALTREX [Suspect]
     Indication: GENITAL HERPES
     Dosage: 500MG TWICE PER DAY
     Route: 048
     Dates: start: 20070411
  2. ENALAPRIL MALEATE [Concomitant]

REACTIONS (2)
  - HEADACHE [None]
  - PAIN [None]
